FAERS Safety Report 4299172-1 (Version None)
Quarter: 2004Q1

REPORT INFORMATION
  Report Type: 
  Country: None (occurrence: None)
  Receive Date: 20040217
  Receipt Date: 20040131
  Transmission Date: 20041129
  Serious: Yes (Other)
  Sender: FDA-Public Use
  Company Number: 2003117013

PATIENT
  Age: 83 Year
  Sex: Female

DRUGS (2)
  1. LIPITOR [Suspect]
     Indication: HYPERCHOLESTEROLAEMIA
     Dosage: (DAILY), ORAL
     Route: 048
  2. ALENDRONATE SODIUM [Concomitant]

REACTIONS (2)
  - EYE HAEMORRHAGE [None]
  - RETINAL HAEMORRHAGE [None]
